FAERS Safety Report 5234647-X (Version None)
Quarter: 2007Q1

REPORT INFORMATION
  Report Type: 
  Country: None (occurrence: None)
  Receive Date: 20070209
  Receipt Date: 20070129
  Transmission Date: 20070707
  Serious: Yes (Hospitalization, Other)
  Sender: FDA-Public Use
  Company Number: US-ELI_LILLY_AND_COMPANY-US200701006054

PATIENT
  Age: 69 Year
  Sex: Male

DRUGS (4)
  1. HUMULIN N [Suspect]
     Indication: DIABETES MELLITUS INSULIN-DEPENDENT
  2. HUMULIN U [Suspect]
     Indication: DIABETES MELLITUS INSULIN-DEPENDENT
     Dosage: 13 U, 2/D
  3. HUMALOG [Suspect]
     Indication: DIABETES MELLITUS INSULIN-DEPENDENT
     Dosage: UNK, AS NEEDED
  4. HUMULIN R [Suspect]
     Indication: DIABETES MELLITUS INSULIN-DEPENDENT
     Dosage: UNK UNK, EACH EVENING

REACTIONS (4)
  - BLOOD GLUCOSE DECREASED [None]
  - FALL [None]
  - LOSS OF CONSCIOUSNESS [None]
  - LOWER LIMB FRACTURE [None]
